FAERS Safety Report 8826182 (Version 1)
Quarter: 2012Q4

REPORT INFORMATION
  Report Type: 
  Country: US (occurrence: US)
  Receive Date: 20121005
  Receipt Date: 20121005
  Transmission Date: 20130627
  Serious: Yes (Other)
  Sender: FDA-Public Use
  Company Number: US-ROCHE-1136951

PATIENT
  Sex: Male

DRUGS (2)
  1. RITUXAN [Suspect]
     Indication: NON-HODGKIN^S LYMPHOMA
     Route: 065
  2. FLUDARABINE [Concomitant]

REACTIONS (6)
  - Pulmonary mass [Unknown]
  - Tachycardia [Unknown]
  - Cough [Unknown]
  - Weight increased [Unknown]
  - Local swelling [Unknown]
  - Rash [Recovering/Resolving]
